FAERS Safety Report 19024574 (Version 3)
Quarter: 2021Q2

REPORT INFORMATION
  Report Type: Report from Study
  Country: US (occurrence: US)
  Receive Date: 20210318
  Receipt Date: 20210423
  Transmission Date: 20210717
  Serious: No
  Sender: FDA-Public Use
  Company Number: NVSC2021US053871

PATIENT
  Sex: Female

DRUGS (1)
  1. TRAVATAN Z [Suspect]
     Active Substance: TRAVOPROST
     Indication: PRODUCT USED FOR UNKNOWN INDICATION
     Route: 065

REACTIONS (6)
  - Hypertension [Unknown]
  - Circumstance or information capable of leading to medication error [Unknown]
  - Insomnia [Unknown]
  - Cardiac disorder [Unknown]
  - Dyspnoea [Unknown]
  - Palpitations [Unknown]
